FAERS Safety Report 19786064 (Version 1)
Quarter: 2021Q3

REPORT INFORMATION
  Report Type: Spontaneous
  Country: FI (occurrence: NL)
  Receive Date: 20210903
  Receipt Date: 20210903
  Transmission Date: 20211014
  Serious: Yes (Other)
  Sender: FDA-Public Use
  Company Number: FI-TEVA-2021-FI-1947726

PATIENT
  Age: 52 Year
  Sex: Female

DRUGS (5)
  1. PREDNISOLON [PREDNISOLONE] [Suspect]
     Active Substance: PREDNISOLONE
     Indication: PRODUCT USED FOR UNKNOWN INDICATION
     Dosage: 5MILLIGRAM
     Route: 065
  2. TREXAN [METHOTREXATE] [Suspect]
     Active Substance: METHOTREXATE
     Dosage: UNIT DOSE:1DOSAGEFORM
     Route: 065
     Dates: start: 20181114
  3. OXIKLORIN [Suspect]
     Active Substance: HYDROXYCHLOROQUINE SULFATE
     Indication: PRODUCT USED FOR UNKNOWN INDICATION
     Dosage: 300MILLIGRAM
     Route: 065
     Dates: end: 20210430
  4. TREXAN [METHOTREXATE] [Suspect]
     Active Substance: METHOTREXATE
     Indication: RHEUMATIC DISORDER
     Dosage: UNIT DOSE:1DOSAGEFORM
     Route: 065
     Dates: start: 20181121
  5. FOLIC ACID. [Suspect]
     Active Substance: FOLIC ACID
     Indication: PRODUCT USED FOR UNKNOWN INDICATION
     Dosage: 1DOSAGEFORM
     Route: 065

REACTIONS (3)
  - Nausea [Unknown]
  - Cataract [Unknown]
  - Renal infarct [Unknown]

NARRATIVE: CASE EVENT DATE: 2018
